FAERS Safety Report 21311547 (Version 2)
Quarter: 2022Q4

REPORT INFORMATION
  Report Type: Spontaneous
  Country: US (occurrence: US)
  Receive Date: 20220909
  Receipt Date: 20221030
  Transmission Date: 20230112
  Serious: No
  Sender: FDA-Public Use
  Company Number: US-BRISTOL-MYERS SQUIBB COMPANY-2022-103743

PATIENT
  Age: 73 Year
  Sex: Female

DRUGS (2)
  1. REVLIMID [Suspect]
     Active Substance: LENALIDOMIDE
     Indication: Plasma cell myeloma
     Dosage: TAKE 1 CAPSULE WHOLE BY MOUTH WITH WATER, W/ OR W/O FOOD, AT APPROXIMATELY SAME TIME DAILY ON DAYS 1
     Route: 048
     Dates: start: 20220108
  2. REVLIMID [Suspect]
     Active Substance: LENALIDOMIDE
     Dosage: TAKE 1 CAPSULE WHOLE WITH WATER, W OR ?W/OUT FOOD AT THE SAME TIME EACH DAY ON DAYS 1-14 OF EACH 21
     Route: 048

REACTIONS (2)
  - Diarrhoea [Unknown]
  - Full blood count abnormal [Recovered/Resolved]
